FAERS Safety Report 18654947 (Version 1)
Quarter: 2020Q4

REPORT INFORMATION
  Report Type: Spontaneous
  Country: US (occurrence: US)
  Receive Date: 20201223
  Receipt Date: 20201223
  Transmission Date: 20210114
  Serious: Yes (Hospitalization)
  Sender: FDA-Public Use
  Company Number: None

PATIENT
  Age: 61 Year
  Sex: Male
  Weight: 95 kg

DRUGS (2)
  1. NIVOLUMAB [Suspect]
     Active Substance: NIVOLUMAB
     Indication: COLORECTAL CANCER
     Dosage: ?          OTHER FREQUENCY:Q2WEEKS;?
     Route: 042
     Dates: start: 20200423
  2. REGORAFENIB. [Suspect]
     Active Substance: REGORAFENIB
     Dosage: ?          OTHER FREQUENCY:QD21 DAYS, 1WKOFF;?
     Route: 048
     Dates: start: 20200423

REACTIONS (3)
  - Musculoskeletal disorder [None]
  - Connective tissue disorder [None]
  - Flank pain [None]

NARRATIVE: CASE EVENT DATE: 20201114
